FAERS Safety Report 10584807 (Version 1)
Quarter: 2014Q4

REPORT INFORMATION
  Report Type: Spontaneous
  Country: US (occurrence: None)
  Receive Date: 20141113
  Receipt Date: 20141113
  Transmission Date: 20150529
  Serious: Yes (Hospitalization)
  Sender: FDA-Public Use
  Company Number: IMP_08115_2014

PATIENT
  Age: 62 Year
  Sex: Male

DRUGS (1)
  1. DIVALPROEX [Suspect]
     Active Substance: DIVALPROEX SODIUM
     Indication: AFFECTIVE DISORDER
     Dosage: (NOT OTHERWISE SPECIFIED)
     Route: 042

REACTIONS (11)
  - Lactic acidosis [None]
  - Abdominal pain [None]
  - Haematemesis [None]
  - Abdominal distension [None]
  - Pyrexia [None]
  - Compartment syndrome [None]
  - Extravasation [None]
  - Dermatitis bullous [None]
  - Oedema peripheral [None]
  - Injection site reaction [None]
  - Erythema [None]
